FAERS Safety Report 11746552 (Version 3)
Quarter: 2017Q4

REPORT INFORMATION
  Report Type: Report from Study
  Country: PK (occurrence: PK)
  Receive Date: 20151117
  Receipt Date: 20171220
  Transmission Date: 20180320
  Serious: Yes (Death, Hospitalization, Other)
  Sender: FDA-Public Use
  Company Number: PK-INCYTE CORPORATION-2015IN005973

PATIENT

DRUGS (2)
  1. JAKAVI [Suspect]
     Active Substance: RUXOLITINIB
     Dosage: 20 MG, BID
     Route: 048
     Dates: start: 20150622
  2. JAKAVI [Suspect]
     Active Substance: RUXOLITINIB
     Indication: PRIMARY MYELOFIBROSIS
     Dosage: 25 MG, BID
     Route: 048
     Dates: start: 20141231, end: 20151029

REACTIONS (15)
  - Cardio-respiratory arrest [Fatal]
  - Diarrhoea [Not Recovered/Not Resolved]
  - Thrombocytopenia [Not Recovered/Not Resolved]
  - Polyuria [Unknown]
  - Hypotension [Not Recovered/Not Resolved]
  - Sepsis [Fatal]
  - Renal impairment [Unknown]
  - Bone pain [Not Recovered/Not Resolved]
  - General physical health deterioration [Unknown]
  - Acute kidney injury [Unknown]
  - Pulse absent [Unknown]
  - Anaemia [Unknown]
  - Haemodynamic instability [Not Recovered/Not Resolved]
  - Abdominal pain [Not Recovered/Not Resolved]
  - Pyrexia [Not Recovered/Not Resolved]

NARRATIVE: CASE EVENT DATE: 20150622
